FAERS Safety Report 10469750 (Version 1)
Quarter: 2014Q3

REPORT INFORMATION
  Report Type: Other
  Country: TR (occurrence: TR)
  Receive Date: 20140923
  Receipt Date: 20140923
  Transmission Date: 20150326
  Serious: Yes (Hospitalization)
  Sender: FDA-Public Use
  Company Number: TR-LUPIN PHARMACEUTICALS INC.-2014-01603

PATIENT
  Age: 70 Year
  Sex: Male

DRUGS (1)
  1. CEFUROXIME. [Suspect]
     Active Substance: CEFUROXIME
     Indication: PROPHYLAXIS
     Dosage: GREATER THAN OR EQUAL TO 6ML (60MG)

REACTIONS (5)
  - Overdose [Unknown]
  - Visual acuity reduced [Not Recovered/Not Resolved]
  - Corneal oedema [Recovered/Resolved]
  - Optic atrophy [Not Recovered/Not Resolved]
  - Retinal infarction [Not Recovered/Not Resolved]
